FAERS Safety Report 25143022 (Version 1)
Quarter: 2025Q2

REPORT INFORMATION
  Report Type: Spontaneous
  Country: US (occurrence: US)
  Receive Date: 20250401
  Receipt Date: 20250401
  Transmission Date: 20250717
  Serious: Yes (Other)
  Sender: BRISTOL MYERS SQUIBB
  Company Number: US-BRISTOL-MYERS SQUIBB COMPANY-2025-042594

PATIENT
  Age: 72 Year
  Sex: Male

DRUGS (1)
  1. THALOMID [Suspect]
     Active Substance: THALIDOMIDE
     Indication: Plasma cell myeloma
     Dosage: TAKE 1 WHOLE CAPSULE (50MG) BY MOUTH DAILY ON AN EMPTY STOMACH AT LEAST 1 HOUR AFTER A MEAL. DO NOT
     Route: 048

REACTIONS (1)
  - Acquired Von Willebrand^s disease [Not Recovered/Not Resolved]
